FAERS Safety Report 8513379-6 (Version None)
Quarter: 2012Q3

REPORT INFORMATION
  Report Type: 
  Country: None (occurrence: None)
  Receive Date: 20120717
  Receipt Date: 20120716
  Transmission Date: 20120928
  Serious: Yes (Hospitalization)
  Sender: FDA-Public Use
  Company Number: FR-AMGEN-FRASP2012043728

PATIENT
  Age: 61 Year
  Sex: Female
  Weight: 55 kg

DRUGS (2)
  1. ACETAMINOPHEN [Concomitant]
     Route: 048
  2. VECTIBIX [Suspect]
     Indication: RECTAL CANCER METASTATIC
     Dosage: 250 MG, UNK
     Route: 042
     Dates: start: 20120321

REACTIONS (1)
  - BACK PAIN [None]
